FAERS Safety Report 4765775-0 (Version None)
Quarter: 2005Q3

REPORT INFORMATION
  Report Type: 
  Country: None (occurrence: None)
  Receive Date: 20050906
  Receipt Date: 20050824
  Transmission Date: 20060218
  Serious: Yes (Death, Hospitalization)
  Sender: FDA-Public Use
  Company Number: CIP05002020

PATIENT
  Age: 84 Year
  Sex: Female

DRUGS (14)
  1. FURADANTIN [Suspect]
     Indication: URINARY TRACT DISORDER
     Dosage: 50 MG, EVERY 2DAY, ORAL
     Route: 048
  2. INDAPAMIDE [Suspect]
     Dosage: 2.5 MG DAILY
  3. METHOTREXATE [Suspect]
     Indication: RHEUMATOID ARTHRITIS
     Dates: start: 19991201
  4. FOLIC ACID [Suspect]
     Dosage: 0.5 MG, DAILY
     Dates: start: 19991001
  5. PERINDOPRIL (PERINDOPRIL) [Suspect]
     Indication: ESSENTIAL HYPERTENSION
     Dosage: 4 MG DAILY
  6. NAPROSYN [Suspect]
     Indication: RHEUMATOID ARTHRITIS
     Dosage: 750 MG DAILY
  7. PRO-BANTHINE (PROPANTHELINE BROMIDE) [Concomitant]
  8. AMLODIPINE [Concomitant]
  9. RANIDITINE (RANITIDINE) [Concomitant]
  10. ACETAMINOPHEN [Concomitant]
  11. PREDNISONE [Concomitant]
  12. ALBUTEROL SULFATE HFA [Concomitant]
  13. IPRATROPIUM BROMIDE [Concomitant]
  14. TERBUTALINE SULFATE [Concomitant]

REACTIONS (9)
  - CHEST PAIN [None]
  - CHEST X-RAY ABNORMAL [None]
  - DYSPNOEA [None]
  - FATIGUE [None]
  - INTERSTITIAL LUNG DISEASE [None]
  - PLEURAL FIBROSIS [None]
  - PULMONARY FIBROSIS [None]
  - RENAL IMPAIRMENT [None]
  - RESPIRATORY FAILURE [None]
